FAERS Safety Report 11089385 (Version 2)
Quarter: 2015Q2

REPORT INFORMATION
  Report Type: Spontaneous
  Country: US (occurrence: None)
  Receive Date: 20150501
  Receipt Date: 20150601
  Transmission Date: 20150821
  Serious: Yes (Hospitalization, Other)
  Sender: FDA-Public Use
  Company Number: US-H14001-15-00568

PATIENT
  Age: 54 Year
  Sex: Male
  Weight: 83.92 kg

DRUGS (4)
  1. TESTOSTERONE CYPIONATE. [Suspect]
     Active Substance: TESTOSTERONE CYPIONATE
     Indication: BLOOD TESTOSTERONE DECREASED
     Dosage: 0.0714 ML (1.5 ML, 1 IN 3 WK)
     Route: 030
     Dates: start: 2014
  2. METHADONE [Concomitant]
     Active Substance: METHADONE HYDROCHLORIDE
  3. OXYCODONE [Concomitant]
     Active Substance: OXYCODONE
  4. TESTOSTERONE CYPIONATE. [Suspect]
     Active Substance: TESTOSTERONE CYPIONATE
     Indication: HYPOTHYROIDISM
     Dosage: 0.0714 ML (1.5 ML, 1 IN 3 WK)
     Route: 030
     Dates: start: 2014

REACTIONS (6)
  - Headache [None]
  - Road traffic accident [None]
  - Product contamination [None]
  - Drug ineffective [None]
  - Incorrect product storage [None]
  - Neck injury [None]

NARRATIVE: CASE EVENT DATE: 2014
